FAERS Safety Report 6149934-0 (Version None)
Quarter: 2009Q2

REPORT INFORMATION
  Report Type: 
  Country: None (occurrence: None)
  Receive Date: 20090409
  Receipt Date: 20090401
  Transmission Date: 20091009
  Serious: Yes (Other)
  Sender: FDA-Public Use
  Company Number: US-ELI_LILLY_AND_COMPANY-US200904000327

PATIENT
  Sex: Male

DRUGS (10)
  1. HUMULIN N [Suspect]
     Dosage: 25 U, UNK
  2. HUMULIN N [Suspect]
     Dosage: 30 U, UNK
  3. GLYBURIDE [Concomitant]
     Indication: TYPE 2 DIABETES MELLITUS
     Dosage: 20 MG, DAILY (1/D)
     Dates: end: 20090331
  4. ALLOPURINOL [Concomitant]
  5. GEMFIBROZIL [Concomitant]
  6. METOPROLOL [Concomitant]
  7. DIGOXIN [Concomitant]
  8. LISINOPRIL [Concomitant]
  9. COUMADIN [Concomitant]
  10. BYETTA [Concomitant]

REACTIONS (4)
  - BLOOD GLUCOSE INCREASED [None]
  - COLONOSCOPY [None]
  - LYMPHOMA [None]
  - RECURRENT CANCER [None]
